FAERS Safety Report 14277205 (Version 2)
Quarter: 2017Q4

REPORT INFORMATION
  Report Type: Spontaneous
  Country: CN (occurrence: CN)
  Receive Date: 20171212
  Receipt Date: 20171215
  Transmission Date: 20180321
  Serious: Yes (Other)
  Sender: FDA-Public Use
  Company Number: CN-ROCHE-2033204

PATIENT
  Age: 62 Year
  Sex: Female

DRUGS (2)
  1. VITAMIN B6 [Concomitant]
     Active Substance: PYRIDOXINE HYDROCHLORIDE
  2. XELODA [Suspect]
     Active Substance: CAPECITABINE
     Indication: BREAST CANCER
     Dosage: 3 TABLETS IN THE MORNING, 2 TABLETS AT NIGHT
     Route: 048
     Dates: start: 201711

REACTIONS (3)
  - Rash [Recovered/Resolved]
  - Hand deformity [Recovered/Resolved]
  - Skin exfoliation [Recovered/Resolved]
